FAERS Safety Report 5712677-9 (Version None)
Quarter: 2008Q2

REPORT INFORMATION
  Report Type: 
  Country: None (occurrence: None)
  Receive Date: 20080422
  Receipt Date: 20080416
  Transmission Date: 20081010
  Serious: Yes (Other)
  Sender: FDA-Public Use
  Company Number: US-BAYER-200811513BCC

PATIENT
  Age: 74 Year
  Sex: Female
  Weight: 73 kg

DRUGS (3)
  1. ASPIRIN [Suspect]
     Indication: ISCHAEMIC HEART DISEASE PROPHYLAXIS
     Route: 048
     Dates: start: 19970101
  2. CELEBREX [Concomitant]
  3. BLOOD PRESSURE MEDICATIONS [Concomitant]

REACTIONS (3)
  - BLOOD URINE PRESENT [None]
  - HAEMATOCHEZIA [None]
  - STOMACH DISCOMFORT [None]
